FAERS Safety Report 16488948 (Version 1)
Quarter: 2019Q2

REPORT INFORMATION
  Report Type: Spontaneous
  Country: US (occurrence: US)
  Receive Date: 20190517
  Receipt Date: 20190517
  Transmission Date: 20190711
  Serious: Yes (Hospitalization)
  Sender: FDA-Public Use
  Company Number: None

PATIENT
  Age: 65 Year
  Sex: Female

DRUGS (18)
  1. ROSUVASTATIN. [Concomitant]
     Active Substance: ROSUVASTATIN
  2. CLONAZEPAM. [Concomitant]
     Active Substance: CLONAZEPAM
  3. AMLODIPINE [Concomitant]
     Active Substance: AMLODIPINE BESYLATE
  4. PREMARIN [Concomitant]
     Active Substance: ESTROGENS, CONJUGATED
  5. ZANTAC [Concomitant]
     Active Substance: RANITIDINE HYDROCHLORIDE
  6. PEPTO-BISMOL [Concomitant]
     Active Substance: BISMUTH SUBSALICYLATE
  7. TUMS [Concomitant]
     Active Substance: CALCIUM CARBONATE
  8. CRESTOR [Concomitant]
     Active Substance: ROSUVASTATIN CALCIUM
  9. FLUOXETINE [Concomitant]
     Active Substance: FLUOXETINE HYDROCHLORIDE
  10. LISINOPRIL. [Concomitant]
     Active Substance: LISINOPRIL
  11. BUPROPN HCL [Concomitant]
     Active Substance: BUPROPION HYDROCHLORIDE
  12. BUT/APAP/CAF [Concomitant]
  13. PROVIGIL [Concomitant]
     Active Substance: MODAFINIL
  14. VENTOLIN [Concomitant]
     Active Substance: ALBUTEROL SULFATE
  15. GLATIRAMER [Suspect]
     Active Substance: GLATIRAMER
     Indication: MULTIPLE SCLEROSIS
     Route: 058
     Dates: start: 20190226
  16. ALPRAZOLAM. [Concomitant]
     Active Substance: ALPRAZOLAM
  17. GABAPENTIN. [Concomitant]
     Active Substance: GABAPENTIN
  18. MODAFINIL. [Concomitant]
     Active Substance: MODAFINIL

REACTIONS (3)
  - Insomnia [None]
  - Dyspnoea [None]
  - Depression [None]
